FAERS Safety Report 8228830-9 (Version None)
Quarter: 2012Q1

REPORT INFORMATION
  Report Type: 
  Country: None (occurrence: None)
  Receive Date: 20120322
  Receipt Date: 20120312
  Transmission Date: 20120608
  Serious: Yes (Hospitalization)
  Sender: FDA-Public Use
  Company Number: JP-GLAXOSMITHKLINE-B0783765A

PATIENT
  Age: 68 Year
  Sex: Male

DRUGS (1)
  1. FLOLAN [Suspect]
     Indication: PULMONARY HYPERTENSION
     Route: 042

REACTIONS (8)
  - BLOOD PRESSURE INCREASED [None]
  - PAIN IN JAW [None]
  - CONDITION AGGRAVATED [None]
  - HEADACHE [None]
  - VASCULAR SHUNT [None]
  - CARDIAC FAILURE [None]
  - ATRIAL SEPTAL DEFECT [None]
  - RESPIRATORY FAILURE [None]
